FAERS Safety Report 13695341 (Version 1)
Quarter: 2017Q2

REPORT INFORMATION
  Report Type: Spontaneous
  Country: US (occurrence: US)
  Receive Date: 20170627
  Receipt Date: 20170627
  Transmission Date: 20170830
  Serious: No
  Sender: FDA-Public Use
  Company Number: US-ACTELION-A-US2017-149039

PATIENT
  Age: 78 Year
  Sex: Female
  Weight: 77.98 kg

DRUGS (2)
  1. ESBRIET [Concomitant]
     Active Substance: PIRFENIDONE
  2. UPTRAVI [Suspect]
     Active Substance: SELEXIPAG
     Indication: IDIOPATHIC PULMONARY FIBROSIS
     Dosage: 600 MCG, BID
     Route: 048
     Dates: start: 20170103

REACTIONS (2)
  - Headache [Unknown]
  - Diarrhoea [Unknown]
